FAERS Safety Report 23094679 (Version 8)
Quarter: 2024Q3

REPORT INFORMATION
  Report Type: Report from Study
  Country: CL (occurrence: CL)
  Receive Date: 20231023
  Receipt Date: 20240731
  Transmission Date: 20241016
  Serious: Yes (Other)
  Sender: NOVARTIS
  Company Number: CL-002147023-NVSC2023CL138214

PATIENT
  Age: 59 Year
  Sex: Female

DRUGS (7)
  1. KISQALI [Suspect]
     Active Substance: RIBOCICLIB
     Indication: Breast cancer
     Dosage: 600 MG, QD
     Route: 048
     Dates: start: 20230610
  2. KISQALI [Suspect]
     Active Substance: RIBOCICLIB
     Dosage: 600 MG, QD
     Route: 048
  3. KISQALI [Suspect]
     Active Substance: RIBOCICLIB
     Dosage: 600 MG, QD
     Route: 048
  4. KISQALI [Suspect]
     Active Substance: RIBOCICLIB
     Dosage: 600 MG, QD, 3 TABLETS
     Route: 048
  5. KISQALI [Suspect]
     Active Substance: RIBOCICLIB
     Dosage: 600 MG, QD, 3 TABLETS
     Route: 048
     Dates: start: 20240102
  6. KISQALI [Suspect]
     Active Substance: RIBOCICLIB
     Dosage: UNK UNK, CYCLIC
     Route: 065
     Dates: start: 20240308
  7. KISQALI [Suspect]
     Active Substance: RIBOCICLIB
     Dosage: 600 MG, QD
     Route: 048

REACTIONS (21)
  - Colitis [Unknown]
  - Rectal haemorrhage [Unknown]
  - Platelet count decreased [Recovered/Resolved]
  - Metastases to pelvis [Unknown]
  - Metastases to spine [Unknown]
  - Pulmonary fibrosis [Unknown]
  - Hypersensitivity [Unknown]
  - Gait inability [Recovered/Resolved]
  - Nasal congestion [Unknown]
  - Dyspepsia [Unknown]
  - Abdominal pain upper [Unknown]
  - Platelet count decreased [Recovered/Resolved]
  - Discomfort [Unknown]
  - Pain in extremity [Unknown]
  - Diverticulum [Unknown]
  - Muscle injury [Unknown]
  - Musculoskeletal pain [Unknown]
  - Mobility decreased [Unknown]
  - Muscular weakness [Unknown]
  - Abdominal pain [Unknown]
  - Fatigue [Unknown]
